FAERS Safety Report 4282599-1 (Version None)
Quarter: 2004Q1

REPORT INFORMATION
  Report Type: 
  Country: None (occurrence: None)
  Receive Date: 20040130
  Receipt Date: 20020912
  Transmission Date: 20041129
  Serious: Yes (Other)
  Sender: FDA-Public Use
  Company Number: US-BRISTOL-MYERS SQUIBB COMPANY-12035598

PATIENT
  Age: 53 Year
  Sex: Female
  Weight: 100 kg

DRUGS (8)
  1. SERZONE [Suspect]
     Dosage: 75 MG DAILY - 50 MG TWICE DAILY
     Route: 048
  2. AMITRIPTYLINE [Concomitant]
  3. ALEVE [Concomitant]
     Indication: FIBROMYALGIA
  4. URSO [Concomitant]
  5. IBUPROFEN [Concomitant]
  6. VITAMIN E [Concomitant]
  7. ZANTAC [Concomitant]
  8. PLAQUENIL [Concomitant]

REACTIONS (8)
  - DIZZINESS [None]
  - DRY MOUTH [None]
  - FATIGUE [None]
  - HEPATIC ENZYME INCREASED [None]
  - HEPATIC STEATOSIS [None]
  - HEPATOCELLULAR DAMAGE [None]
  - INSOMNIA [None]
  - KERATOCONJUNCTIVITIS SICCA [None]
